FAERS Safety Report 17877681 (Version 1)
Quarter: 2020Q2

REPORT INFORMATION
  Report Type: Spontaneous
  Country: TW (occurrence: TW)
  Receive Date: 20200609
  Receipt Date: 20200609
  Transmission Date: 20200714
  Serious: Yes (Death)
  Sender: FDA-Public Use
  Company Number: TW-PFIZER INC-2020221057

PATIENT
  Age: 58 Year
  Sex: Female

DRUGS (12)
  1. CISPLATIN. [Suspect]
     Active Substance: CISPLATIN
     Dosage: UNK, X4
     Dates: start: 20190624, end: 20190831
  2. CISPLATIN. [Suspect]
     Active Substance: CISPLATIN
     Dosage: UNK, D1, D8
     Dates: start: 20190921
  3. BEVACIZUMAB. [Suspect]
     Active Substance: BEVACIZUMAB
     Dosage: UNK
     Dates: start: 20190420
  4. TAXOTERE [Suspect]
     Active Substance: DOCETAXEL
     Dosage: UNK
     Dates: start: 20190420
  5. AVASTIN [Suspect]
     Active Substance: BEVACIZUMAB
     Dosage: UNK, X1
     Dates: start: 20190921
  6. ALIMTA [Suspect]
     Active Substance: PEMETREXED DISODIUM
     Dosage: UNK, X5
     Dates: start: 20151214, end: 20160608
  7. PEMBROLIZUMAB. [Suspect]
     Active Substance: PEMBROLIZUMAB
     Dosage: UNK, X4
     Dates: start: 20190624, end: 20190831
  8. CISPLATIN. [Suspect]
     Active Substance: CISPLATIN
     Dosage: UNK, X1 THEN X5
     Dates: start: 20151214, end: 20160608
  9. GEMCITABINE HYDROCHLORIDE. [Suspect]
     Active Substance: GEMCITABINE HYDROCHLORIDE
     Dosage: UNK, D1,D8
     Dates: start: 20190921
  10. GEMCITABINE HYDROCHLORIDE. [Suspect]
     Active Substance: GEMCITABINE HYDROCHLORIDE
     Dosage: UNK, D1,D8
     Dates: start: 20191014
  11. AVASTIN [Suspect]
     Active Substance: BEVACIZUMAB
     Dosage: UNK, X4
     Dates: start: 20190624, end: 20190831
  12. TAXOTERE [Suspect]
     Active Substance: DOCETAXEL
     Dosage: UNK, X1 THEN X5
     Dates: start: 20151214, end: 20160608

REACTIONS (1)
  - Death [Fatal]

NARRATIVE: CASE EVENT DATE: 20191118
